FAERS Safety Report 11286638 (Version 1)
Quarter: 2015Q2

REPORT INFORMATION
  Report Type: Spontaneous
  Country: US (occurrence: None)
  Receive Date: 20150623
  Receipt Date: 20150623
  Transmission Date: 20150821
  Serious: Yes (Other)
  Sender: FDA-Public Use
  Company Number: RB-66318-2014

PATIENT
  Sex: Female

DRUGS (1)
  1. MUCINEX DM [Suspect]
     Active Substance: DEXTROMETHORPHAN HYDROBROMIDE\GUAIFENESIN
     Indication: PRODUCT USED FOR UNKNOWN INDICATION
     Dosage: 2X/12 HOURS
     Route: 048
     Dates: start: 20140515

REACTIONS (5)
  - Ear infection [None]
  - Otorrhoea [None]
  - Ear discomfort [None]
  - Condition aggravated [None]
  - Tympanic membrane perforation [None]
